FAERS Safety Report 7121316-4 (Version None)
Quarter: 2010Q4

REPORT INFORMATION
  Report Type: 
  Country: None (occurrence: None)
  Receive Date: 20101119
  Receipt Date: 20101119
  Transmission Date: 20110411
  Serious: No
  Sender: FDA-Public Use
  Company Number: None

PATIENT
  Age: 46 Year
  Sex: Female

DRUGS (1)
  1. CLIMARA [Suspect]
     Dosage: APPLY 1 PATCH AND CHANGE EVERY WEEK

REACTIONS (2)
  - DRUG INEFFECTIVE [None]
  - PRODUCT ADHESION ISSUE [None]
